FAERS Safety Report 4270207-5 (Version None)
Quarter: 2004Q1

REPORT INFORMATION
  Report Type: 
  Country: None (occurrence: None)
  Receive Date: 20040112
  Receipt Date: 20031230
  Transmission Date: 20041129
  Serious: Yes (Death, Life-Threatening, Hospitalization, Other)
  Sender: FDA-Public Use
  Company Number: 001-0719-M0200070

PATIENT
  Sex: Male
  Weight: 93.441 kg

DRUGS (10)
  1. LOPID [Suspect]
     Indication: ILL-DEFINED DISORDER
     Dosage: 1200 MG (600 MG, BID)
  2. CERIVASTATIN (CERIVASTATIN) [Suspect]
     Indication: HYPERLIPIDAEMIA
     Dosage: 0.4 MG (ONCE DAILY)
     Dates: start: 20001101
  3. PREDNISONE [Suspect]
     Indication: ILL-DEFINED DISORDER
     Dosage: 80 MG, NASOGASTRIC TUBE
     Dates: start: 20001207
  4. ROSIGLITAZONE MALEATE (ROSIGLITAZONE MALEATE) [Concomitant]
  5. DYAZIDE [Concomitant]
  6. DIAZEPAM [Concomitant]
  7. GLYBURIDE [Concomitant]
  8. POTASSIUM CHLORIDE [Concomitant]
  9. PRAZOSIN HYDROCHLORIDE (PRAZOSIN HYDROCHLORIDE) [Concomitant]
  10. CHLORTALIDONE (CHLORTALIDONE) [Concomitant]

REACTIONS (30)
  - BLOOD GLUCOSE INCREASED [None]
  - BLOOD LACTATE DEHYDROGENASE INCREASED [None]
  - CARDIO-RESPIRATORY ARREST [None]
  - CONJUNCTIVITIS [None]
  - DIALYSIS [None]
  - DIASTOLIC DYSFUNCTION [None]
  - DRUG INTERACTION [None]
  - GLYCOSYLATED HAEMOGLOBIN INCREASED [None]
  - HEAT RASH [None]
  - HYPERKALAEMIA [None]
  - HYPERTENSIVE HEART DISEASE [None]
  - LEUKOPENIA [None]
  - LOWER RESPIRATORY TRACT INFECTION [None]
  - MYOCARDIAL INFARCTION [None]
  - NERVE ROOT COMPRESSION [None]
  - NEUTROPENIA [None]
  - ORGAN FAILURE [None]
  - OSTEOARTHRITIS [None]
  - PHARYNGOLARYNGEAL PAIN [None]
  - QUADRIPARESIS [None]
  - RESPIRATORY FAILURE [None]
  - RHABDOMYOLYSIS [None]
  - SCIATICA [None]
  - SKIN LACERATION [None]
  - SPINAL COLUMN STENOSIS [None]
  - SPINAL OSTEOARTHRITIS [None]
  - VENTRICULAR FIBRILLATION [None]
  - VENTRICULAR HYPERTROPHY [None]
  - WHEEZING [None]
  - WHITE BLOOD CELL COUNT INCREASED [None]
